FAERS Safety Report 25636162 (Version 2)
Quarter: 2025Q3

REPORT INFORMATION
  Report Type: Spontaneous
  Country: US (occurrence: US)
  Receive Date: 20250803
  Receipt Date: 20250806
  Transmission Date: 20251021
  Serious: No
  Sender: SANOFI AVENTIS
  Company Number: US-SA-2025SA221855

PATIENT
  Age: 58 Year
  Sex: Female

DRUGS (17)
  1. DUPIXENT [Suspect]
     Active Substance: DUPILUMAB
     Indication: Asthma
     Route: 058
     Dates: start: 20200730
  2. LEVOFLOXACIN [Concomitant]
     Active Substance: LEVOFLOXACIN
  3. TRAMADOL [Concomitant]
     Active Substance: TRAMADOL
  4. PREDNISONE [Concomitant]
     Active Substance: PREDNISONE
  5. SINGULAIR [Concomitant]
     Active Substance: MONTELUKAST SODIUM
  6. MYCOPHENOLIC ACID [Concomitant]
     Active Substance: MYCOPHENOLIC ACID
  7. LOSARTAN [Concomitant]
     Active Substance: LOSARTAN
  8. NUCALA [Concomitant]
     Active Substance: MEPOLIZUMAB
  9. ATORVASTATIN [Concomitant]
     Active Substance: ATORVASTATIN
  10. CITALOPRAM [Concomitant]
     Active Substance: CITALOPRAM
  11. ASPIRIN [Concomitant]
     Active Substance: ASPIRIN
  12. VITAMINS NOS [Concomitant]
     Active Substance: VITAMINS
  13. AZITHROMYCIN [Concomitant]
     Active Substance: AZITHROMYCIN
  14. MELOXICAM [Concomitant]
     Active Substance: MELOXICAM
  15. GABAPENTIN [Concomitant]
     Active Substance: GABAPENTIN
  16. LEVOTHYROXINE [Concomitant]
     Active Substance: LEVOTHYROXINE
  17. NAPROXEN [Concomitant]
     Active Substance: NAPROXEN

REACTIONS (3)
  - Nasopharyngitis [Unknown]
  - Cough [Unknown]
  - Throat irritation [Unknown]

NARRATIVE: CASE EVENT DATE: 20250728
